FAERS Safety Report 20976162 (Version 1)
Quarter: 2022Q2

REPORT INFORMATION
  Report Type: Report from Study
  Country: EG (occurrence: EG)
  Receive Date: 20220617
  Receipt Date: 20220617
  Transmission Date: 20220720
  Serious: Yes (Other)
  Sender: FDA-Public Use
  Company Number: EG-NOVARTISPH-NVSC2022EG136844

PATIENT
  Age: 64 Year
  Sex: Female

DRUGS (11)
  1. HYRIMOZ [Suspect]
     Active Substance: ADALIMUMAB-ADAZ
     Indication: Rheumatoid arthritis
     Dosage: 1 DOSAGE FORM, Q2W
     Route: 058
     Dates: start: 20211215, end: 20220302
  2. ALTIZEM [Concomitant]
     Indication: Heart rate abnormal
     Dosage: 0.5 DOSAGE FORM, BID (HALF A TAB IN MORNING AND HALF AT NIGHT)
     Route: 065
     Dates: start: 2014
  3. ASPIRIN [Concomitant]
     Active Substance: ASPIRIN
     Indication: Coagulopathy
     Dosage: UNK, QD
     Route: 065
     Dates: start: 2014
  4. BRADIPECT [Concomitant]
     Indication: Heart rate increased
     Dosage: UNK, BID
     Route: 065
     Dates: start: 2014
  5. ROSTOR [Concomitant]
     Indication: Blood cholesterol abnormal
     Dosage: UNK, QD
     Route: 065
     Dates: start: 2014
  6. HYDROXYCHLOROQUINE SULFATE [Concomitant]
     Active Substance: HYDROXYCHLOROQUINE SULFATE
     Indication: Rheumatoid arthritis
     Dosage: UNK, QD
     Route: 065
     Dates: start: 2018
  7. ONE -ALPHA [Concomitant]
     Indication: Hypovitaminosis
     Dosage: UNK, QD
     Route: 065
     Dates: start: 2018
  8. CALCIUM [Concomitant]
     Active Substance: CALCIUM
     Indication: Hypovitaminosis
     Dosage: UNK, QD
     Route: 065
     Dates: start: 2018
  9. FOLIC ACID [Concomitant]
     Active Substance: FOLIC ACID
     Indication: Hypovitaminosis
     Dosage: UNK, QD
     Route: 065
     Dates: start: 2018
  10. DOROFEN [Concomitant]
     Indication: Osteoarthritis
     Dosage: UNK, QD
     Route: 065
     Dates: start: 2018
  11. VASTAREL [Concomitant]
     Active Substance: TRIMETAZIDINE DIHYDROCHLORIDE
     Indication: Angiopathy
     Dosage: 2 DOSAGE FORM, QD
     Route: 065
     Dates: start: 2014

REACTIONS (13)
  - Red blood cell sedimentation rate increased [Unknown]
  - Rheumatoid factor increased [Unknown]
  - C-reactive protein increased [Unknown]
  - Hypertension [Recovered/Resolved]
  - Arthralgia [Recovering/Resolving]
  - Oedema peripheral [Recovering/Resolving]
  - Drug ineffective [Not Recovered/Not Resolved]
  - Mobility decreased [Not Recovered/Not Resolved]
  - Dysaesthesia [Not Recovered/Not Resolved]
  - Finger deformity [Not Recovered/Not Resolved]
  - Dizziness [Recovered/Resolved]
  - Heart rate increased [Recovered/Resolved]
  - Hyperhidrosis [Recovered/Resolved]

NARRATIVE: CASE EVENT DATE: 20211215
